FAERS Safety Report 9341915 (Version 6)
Quarter: 2014Q1

REPORT INFORMATION
  Report Type: Report from Study
  Country: US (occurrence: US)
  Receive Date: 20130611
  Receipt Date: 20140331
  Transmission Date: 20141002
  Serious: Yes (Other)
  Sender: FDA-Public Use
  Company Number: US-SANOFI-AVENTIS-2013SA058764

PATIENT
  Age: 54 Year
  Sex: Female
  Weight: 63.5 kg

DRUGS (10)
  1. AUBAGIO [Suspect]
     Indication: MULTIPLE SCLEROSIS
     Route: 048
     Dates: start: 20130501, end: 20130617
  2. AUBAGIO [Suspect]
     Indication: MULTIPLE SCLEROSIS
     Route: 048
     Dates: start: 20130522
  3. AUBAGIO [Suspect]
     Indication: MULTIPLE SCLEROSIS
     Route: 048
     Dates: start: 20130528
  4. AUBAGIO [Suspect]
     Indication: MULTIPLE SCLEROSIS
     Route: 065
     Dates: start: 201305
  5. LEVOTHYROXINE [Concomitant]
     Indication: THYROID DISORDER
     Route: 065
     Dates: start: 2003
  6. LOVASTATIN [Concomitant]
     Indication: BLOOD CHOLESTEROL
     Route: 065
     Dates: start: 2003
  7. LOVASTATIN [Concomitant]
     Indication: BLOOD CHOLESTEROL
  8. WELLBUTRIN [Concomitant]
     Indication: DEPRESSION
     Route: 065
     Dates: start: 2006
  9. WELLBUTRIN [Concomitant]
     Indication: DEPRESSION
     Dates: start: 1990
  10. BACLOFEN [Concomitant]
     Indication: MULTIPLE SCLEROSIS
     Dosage: BID OR QHS
     Route: 065
     Dates: start: 2006

REACTIONS (8)
  - Mania [Recovered/Resolved]
  - Psychomotor hyperactivity [Recovered/Resolved]
  - Flight of ideas [Recovered/Resolved]
  - Pressure of speech [Recovered/Resolved]
  - Insomnia [Recovered/Resolved]
  - Hypomania [Recovering/Resolving]
  - Decreased appetite [Recovered/Resolved]
  - Drug dose omission [Unknown]
